FAERS Safety Report 7776266-7 (Version None)
Quarter: 2011Q3

REPORT INFORMATION
  Report Type: 
  Country: None (occurrence: None)
  Receive Date: 20110921
  Receipt Date: 20110906
  Transmission Date: 20111222
  Serious: Yes (Other)
  Sender: FDA-Public Use
  Company Number: AUR-APL-2011-04934

PATIENT
  Age: 20 Year
  Sex: Female

DRUGS (1)
  1. LAMOTRIGINE [Suspect]
     Indication: EPILEPSY
     Dosage: 200 MG (100 MG,2 IN 1 D),ORAL
     Route: 048

REACTIONS (3)
  - HAEMATOMA [None]
  - PLACENTAL DISORDER [None]
  - MATERNAL EXPOSURE DURING PREGNANCY [None]
